FAERS Safety Report 6547375-5 (Version None)
Quarter: 2010Q1

REPORT INFORMATION
  Report Type: 
  Country: None (occurrence: None)
  Receive Date: 20100122
  Receipt Date: 20100113
  Transmission Date: 20100710
  Serious: Yes (Hospitalization, Other)
  Sender: FDA-Public Use
  Company Number: US-ABBOTT-10P-163-0619074-00

PATIENT
  Sex: Female
  Weight: 90.8 kg

DRUGS (2)
  1. SYNTHROID [Suspect]
     Indication: AUTOIMMUNE THYROIDITIS
     Route: 048
     Dates: start: 20010101
  2. SYNTHROID [Suspect]
     Route: 048
     Dates: end: 20090701

REACTIONS (2)
  - TACHYCARDIA [None]
  - UTERINE LEIOMYOMA [None]
